FAERS Safety Report 4992584-X (Version None)
Quarter: 2006Q1

REPORT INFORMATION
  Report Type: 
  Country: None (occurrence: None)
  Receive Date: 20060315
  Receipt Date: 20050928
  Transmission Date: 20060701
  Serious: Yes (Other)
  Sender: FDA-Public Use
  Company Number: USA0509109395

PATIENT
  Age: 75 Year
  Sex: Male

DRUGS (2)
  1. GEMZAR [Suspect]
     Indication: ADENOCARCINOMA
     Dosage: 1000 MG/M2
  2. CARBOPLATIN [Concomitant]

REACTIONS (1)
  - PNEUMONITIS [None]
